FAERS Safety Report 11875150 (Version 1)
Quarter: 2015Q4

REPORT INFORMATION
  Report Type: Spontaneous
  Country: US (occurrence: None)
  Receive Date: 20151228
  Receipt Date: 20151228
  Transmission Date: 20160305
  Serious: Yes (Hospitalization)
  Sender: FDA-Public Use
  Company Number: None

PATIENT
  Age: 59 Year
  Sex: Male
  Weight: 89.6 kg

DRUGS (1)
  1. OLANZAPINE. [Suspect]
     Active Substance: OLANZAPINE
     Indication: SCHIZOAFFECTIVE DISORDER
     Route: 048
     Dates: start: 20060918

REACTIONS (13)
  - Confusional state [None]
  - Rhinorrhoea [None]
  - Pain [None]
  - Nystagmus [None]
  - Clonus [None]
  - Neuroleptic malignant syndrome [None]
  - Headache [None]
  - Dizziness [None]
  - Sepsis [None]
  - Serotonin syndrome [None]
  - Pyrexia [None]
  - Mental status changes [None]
  - Cough [None]

NARRATIVE: CASE EVENT DATE: 20151116
